FAERS Safety Report 7953989-8 (Version None)
Quarter: 2011Q4

REPORT INFORMATION
  Report Type: 
  Country: None (occurrence: None)
  Receive Date: 20111202
  Receipt Date: 20111202
  Transmission Date: 20120403
  Serious: Yes (Other)
  Sender: FDA-Public Use
  Company Number: None

PATIENT
  Sex: Male
  Weight: 111.13 kg

DRUGS (2)
  1. ALFUZOSIN HCL [Suspect]
     Indication: BENIGN PROSTATIC HYPERPLASIA
     Dosage: 1 TAB
     Route: 048
     Dates: start: 20111121, end: 20111122
  2. UROXATRAL [Suspect]

REACTIONS (3)
  - OEDEMA PERIPHERAL [None]
  - SWOLLEN TONGUE [None]
  - HYPERSENSITIVITY [None]
